FAERS Safety Report 6592776-2 (Version None)
Quarter: 2010Q1

REPORT INFORMATION
  Report Type: 
  Country: None (occurrence: None)
  Receive Date: 20100212
  Receipt Date: 20100202
  Transmission Date: 20100710
  Serious: Yes (Death)
  Sender: FDA-Public Use
  Company Number: 2010SP000361

PATIENT
  Sex: Male

DRUGS (3)
  1. LUNESTA [Suspect]
     Dosage: ORAL
     Route: 048
     Dates: end: 20080101
  2. BENZODIAZEPINE DERIVATIVES [Suspect]
     Dates: end: 20080101
  3. CABON MONOXIDE [Suspect]
     Dosage: ; INHALATION
     Route: 055
     Dates: end: 20080101

REACTIONS (1)
  - CARDIO-RESPIRATORY ARREST [None]
